FAERS Safety Report 6794561-5 (Version None)
Quarter: 2010Q2

REPORT INFORMATION
  Report Type: 
  Country: None (occurrence: None)
  Receive Date: 20100625
  Receipt Date: 20100617
  Transmission Date: 20101027
  Serious: Yes (Other)
  Sender: FDA-Public Use
  Company Number: JP-PFIZER INC-2010049518

PATIENT
  Age: 65 Year
  Sex: Male
  Weight: 57.5 kg

DRUGS (3)
  1. LIPITOR [Suspect]
     Indication: TYPE IIB HYPERLIPIDAEMIA
     Dosage: 5 MG, 1X/DAY UID
     Route: 048
     Dates: start: 20100210, end: 20100309
  2. LIPITOR [Suspect]
     Indication: CAROTID ARTERIOSCLEROSIS
     Dosage: 5 MG, ALTERNATE DAY
     Route: 048
     Dates: start: 20100310, end: 20100324
  3. ASPIRIN [Suspect]
     Indication: CAROTID ARTERIOSCLEROSIS
     Dosage: 100 MG, 1X/DAY, UID
     Route: 048
     Dates: start: 20100210

REACTIONS (1)
  - DIABETES MELLITUS INADEQUATE CONTROL [None]
